FAERS Safety Report 17961836 (Version 1)
Quarter: 2020Q2

REPORT INFORMATION
  Report Type: Spontaneous
  Country: US (occurrence: US)
  Receive Date: 20200629
  Receipt Date: 20200629
  Transmission Date: 20200714
  Serious: Yes (Hospitalization)
  Sender: FDA-Public Use
  Company Number: None

PATIENT
  Sex: Female

DRUGS (13)
  1. SILDENAFIL 20MG TAB [Suspect]
     Active Substance: SILDENAFIL
     Indication: PULMONARY ARTERIAL HYPERTENSION
     Route: 048
     Dates: start: 20170420
  2. ORENITRAM [Concomitant]
     Active Substance: TREPROSTINIL
  3. GABAPENTIN. [Concomitant]
     Active Substance: GABAPENTIN
  4. LEVOTHYROXIN [Concomitant]
     Active Substance: LEVOTHYROXINE
  5. PANTOPRAZOLE [Concomitant]
     Active Substance: PANTOPRAZOLE
  6. BETHANECHOL [Concomitant]
     Active Substance: BETHANECHOL
  7. RITUXAN [Concomitant]
     Active Substance: RITUXIMAB
  8. BUMEX [Concomitant]
     Active Substance: BUMETANIDE
  9. SPIRONOLACT [Concomitant]
     Active Substance: SPIRONOLACTONE
  10. ALLOPURINOL. [Concomitant]
     Active Substance: ALLOPURINOL
  11. LOSARTAN POT [Concomitant]
     Active Substance: LOSARTAN POTASSIUM
  12. OPSUMIT [Concomitant]
     Active Substance: MACITENTAN
  13. REMODULIN [Concomitant]
     Active Substance: TREPROSTINIL

REACTIONS (1)
  - Fluid retention [None]
